FAERS Safety Report 4622193-3 (Version None)
Quarter: 2005Q1

REPORT INFORMATION
  Report Type: 
  Country: None (occurrence: None)
  Receive Date: 20050324
  Receipt Date: 20050324
  Transmission Date: 20050727
  Serious: No
  Sender: FDA-Public Use
  Company Number: None

PATIENT
  Sex: Male
  Weight: 80.8 kg

DRUGS (5)
  1. CYCLOPHOSPHAMIDE [Suspect]
     Dosage: 1455 MG
     Dates: end: 20050316
  2. DOXORUBICIN HYDROCHLORIDE [Suspect]
     Dosage: 9 MG
     Dates: end: 20050316
  3. PREDNISONE [Suspect]
     Dosage: 20 MG
     Dates: end: 20050316
  4. RITUXIMAB MOAB  C2B8 [Suspect]
     Dosage: 728 MG
     Dates: end: 20050314
  5. VINCRISTINE SULFATE [Suspect]
     Dosage: 2 MG
     Dates: end: 20050316

REACTIONS (5)
  - CATHETER SITE CELLULITIS [None]
  - GASTROOESOPHAGEAL REFLUX DISEASE [None]
  - HYPERGLYCAEMIA [None]
  - HYPONATRAEMIA [None]
  - PANCREATITIS [None]
